FAERS Safety Report 7638138-8 (Version None)
Quarter: 2011Q3

REPORT INFORMATION
  Report Type: 
  Country: None (occurrence: None)
  Receive Date: 20110722
  Receipt Date: 20110722
  Transmission Date: 20111222
  Serious: Yes (Death, Hospitalization)
  Sender: FDA-Public Use
  Company Number: None

PATIENT
  Sex: Male
  Weight: 65.8 kg

DRUGS (3)
  1. CYTARABINE [Suspect]
     Dosage: 28480 MG
     Dates: end: 20100403
  2. ETOPOSIDE [Suspect]
     Dosage: 2716 MG
     Dates: end: 20100403
  3. RITUXIMAB (MOAB C2B8 ANTI CD20, CHIMERIC) [Suspect]
     Dosage: 1330 MG
     Dates: end: 20100413

REACTIONS (6)
  - MUCOSAL INFLAMMATION [None]
  - CEREBRAL VENTRICLE DILATATION [None]
  - COMPLEX PARTIAL SEIZURES [None]
  - BACTERIAL TEST POSITIVE [None]
  - CLOSTRIDIUM DIFFICILE COLITIS [None]
  - PULSELESS ELECTRICAL ACTIVITY [None]
